FAERS Safety Report 19114210 (Version 3)
Quarter: 2021Q3

REPORT INFORMATION
  Report Type: Spontaneous
  Country: US (occurrence: US)
  Receive Date: 20210409
  Receipt Date: 20210825
  Transmission Date: 20211014
  Serious: Yes (Death, Disabling, Other)
  Sender: FDA-Public Use
  Company Number: US-ELI_LILLY_AND_COMPANY-US202104000052

PATIENT
  Age: 78 Year
  Sex: Male

DRUGS (2)
  1. HUMALOG [Suspect]
     Active Substance: INSULIN LISPRO
     Indication: TYPE 1 DIABETES MELLITUS
     Dosage: UNK UNK, UNKNOWN
     Route: 065
  2. LANTUS [Concomitant]
     Active Substance: INSULIN GLARGINE
     Indication: TYPE 2 DIABETES MELLITUS

REACTIONS (10)
  - Cervical vertebral fracture [Unknown]
  - Neck injury [Recovering/Resolving]
  - Confusional state [Recovering/Resolving]
  - General physical health deterioration [Unknown]
  - Fall [Recovering/Resolving]
  - Brain injury [Unknown]
  - Parkinson^s disease [Unknown]
  - Head injury [Recovering/Resolving]
  - Death [Fatal]
  - Speech disorder [Recovering/Resolving]

NARRATIVE: CASE EVENT DATE: 20170305
